FAERS Safety Report 9793394 (Version 2)
Quarter: 2014Q1

REPORT INFORMATION
  Report Type: Spontaneous
  Country: US (occurrence: US)
  Receive Date: 20140102
  Receipt Date: 20140124
  Transmission Date: 20141002
  Serious: No
  Sender: FDA-Public Use
  Company Number: US-009507513-1312USA009725

PATIENT
  Age: 71 Year
  Sex: Female
  Weight: 65.76 kg

DRUGS (3)
  1. OXYTROL FOR WOMEN [Suspect]
     Indication: URINARY TRACT INFECTION
     Dosage: UNK, UNKNOWN
     Route: 062
     Dates: start: 20131207, end: 20131210
  2. LIPITOR [Concomitant]
     Indication: BLOOD CHOLESTEROL ABNORMAL
     Dosage: UNK, UNKNOWN
  3. AMLODIPINE [Concomitant]
     Indication: HYPERTENSION
     Dosage: UNK, UNKNOWN

REACTIONS (5)
  - Application site swelling [Recovered/Resolved]
  - Application site erythema [Recovered/Resolved]
  - Application site pruritus [Recovered/Resolved]
  - Rash [Recovered/Resolved]
  - Off label use [Unknown]
